FAERS Safety Report 7447678-6 (Version None)
Quarter: 2011Q2

REPORT INFORMATION
  Report Type: 
  Country: None (occurrence: None)
  Receive Date: 20110429
  Receipt Date: 20110209
  Transmission Date: 20111010
  Serious: No
  Sender: FDA-Public Use
  Company Number: US-ASTRAZENECA-2011SE00382

PATIENT
  Age: 81 Year
  Sex: Female
  Weight: 76.7 kg

DRUGS (5)
  1. ANTARA (MICRONIZED) [Concomitant]
  2. AVAPRO [Concomitant]
  3. NEXIUM [Suspect]
     Indication: GASTROOESOPHAGEAL REFLUX DISEASE
     Route: 048
     Dates: start: 20010101
  4. BUSPIRIONE [Concomitant]
  5. LEXAPRO [Concomitant]

REACTIONS (1)
  - NASOPHARYNGITIS [None]
